FAERS Safety Report 18145938 (Version 1)
Quarter: 2020Q3

REPORT INFORMATION
  Report Type: Spontaneous
  Country: CN (occurrence: CN)
  Receive Date: 20200813
  Receipt Date: 20200813
  Transmission Date: 20201103
  Serious: Yes (Other)
  Sender: FDA-Public Use
  Company Number: CN-ELI_LILLY_AND_COMPANY-CN202008000997

PATIENT
  Sex: Male
  Weight: 48 kg

DRUGS (1)
  1. PEMETREXED. [Suspect]
     Active Substance: PEMETREXED
     Indication: BRONCHIAL CARCINOMA
     Dosage: 700 MG, SINGLE
     Route: 041
     Dates: start: 20200714

REACTIONS (1)
  - Hepatic failure [Recovering/Resolving]
